FAERS Safety Report 19149312 (Version 4)
Quarter: 2022Q4

REPORT INFORMATION
  Report Type: Report from Study
  Country: US (occurrence: US)
  Receive Date: 20210417
  Receipt Date: 20221108
  Transmission Date: 20230113
  Serious: Yes (Hospitalization, Other)
  Sender: FDA-Public Use
  Company Number: US-TAKEDA-2021TUS024105

PATIENT
  Sex: Male

DRUGS (1)
  1. PONATINIB [Suspect]
     Active Substance: PONATINIB
     Indication: Chronic myeloid leukaemia
     Dosage: 30 MILLIGRAM, QD
     Route: 048

REACTIONS (6)
  - Renal failure [Unknown]
  - Retching [Unknown]
  - Haemoptysis [Unknown]
  - Dehydration [Unknown]
  - Treatment noncompliance [Unknown]
  - Product dose omission issue [Unknown]
